FAERS Safety Report 9271281 (Version 1)
Quarter: 2013Q2

REPORT INFORMATION
  Report Type: Spontaneous
  Country: US (occurrence: US)
  Receive Date: 20130506
  Receipt Date: 20130506
  Transmission Date: 20140414
  Serious: No
  Sender: FDA-Public Use
  Company Number: US-ELI_LILLY_AND_COMPANY-US201304007656

PATIENT
  Age: 81 Year
  Sex: Female

DRUGS (5)
  1. CYMBALTA [Suspect]
     Indication: DEPRESSION
     Dosage: 30 MG, QD
     Dates: start: 201205
  2. TYLENOL                                 /SCH/ [Concomitant]
     Dosage: UNK, PRN
  3. PRADAXA [Concomitant]
     Dosage: 150 MG, UNKNOWN
  4. LASIX [Concomitant]
  5. VITAMIN B12 [Concomitant]

REACTIONS (1)
  - Hepatic enzyme increased [Unknown]
